FAERS Safety Report 4826598-7 (Version None)
Quarter: 2005Q4

REPORT INFORMATION
  Report Type: 
  Country: None (occurrence: None)
  Receive Date: 20051014
  Receipt Date: 20050819
  Transmission Date: 20060501
  Serious: No
  Sender: FDA-Public Use
  Company Number: 2005SP002429

PATIENT
  Age: 70 Year
  Sex: Male

DRUGS (3)
  1. LUNESTA [Suspect]
     Dosage: 2MG ;HS; ORAL
     Route: 048
     Dates: start: 20050801, end: 20050101
  2. LUNESTA [Suspect]
     Dosage: 2MG ;HS; ORAL
     Route: 048
     Dates: start: 20050101
  3. LUNESTA [Suspect]
     Dosage: 1MG;HS; ORAL
     Route: 048
     Dates: start: 20050101

REACTIONS (1)
  - DYSGEUSIA [None]
